FAERS Safety Report 8345969-8 (Version None)
Quarter: 2012Q2

REPORT INFORMATION
  Report Type: 
  Country: None (occurrence: None)
  Receive Date: 20120507
  Receipt Date: 20120424
  Transmission Date: 20120825
  Serious: Yes (Other)
  Sender: FDA-Public Use
  Company Number: DSA_48591_2011

PATIENT
  Age: 76 Year
  Sex: Female

DRUGS (3)
  1. ISOSORBIDE DINITRATE [Suspect]
     Indication: IMAGING PROCEDURE
     Dosage: 0.3 MG ONCE
     Dates: start: 20111212, end: 20111212
  2. HEPARIN SODIUM [Suspect]
     Indication: IMAGING PROCEDURE
     Dosage: 3000 IU ONCE
     Dates: start: 20111212, end: 20111212
  3. DILTIAZEM [Suspect]
     Indication: IMAGING PROCEDURE
     Dosage: 25 MG ONCE
     Dates: start: 20111212, end: 20111212

REACTIONS (2)
  - WRONG TECHNIQUE IN DRUG USAGE PROCESS [None]
  - INJECTION SITE ERYTHEMA [None]
